FAERS Safety Report 23105664 (Version 1)
Quarter: 2023Q4

REPORT INFORMATION
  Report Type: Spontaneous
  Country: US (occurrence: None)
  Receive Date: 20231023
  Receipt Date: 20231023
  Transmission Date: 20240110
  Serious: Yes (Hospitalization)
  Sender: FDA-Public Use
  Company Number: None

PATIENT
  Sex: Female

DRUGS (8)
  1. PULMOZYME [Suspect]
     Active Substance: DORNASE ALFA
     Indication: Cystic fibrosis
     Dosage: OTHER QUANTITY : 2.5 MG/2.5ML;?
     Route: 055
     Dates: start: 20160305
  2. BACTRIM [Concomitant]
     Active Substance: SULFAMETHOXAZOLE\TRIMETHOPRIM
  3. CLARITIN [Concomitant]
     Active Substance: LORATADINE
  4. MULTIVITAMIN [Concomitant]
  5. OMEPRA/BICAR [Concomitant]
  6. SINGULAIR [Concomitant]
     Active Substance: MONTELUKAST SODIUM
  7. XOPENEX [Concomitant]
  8. ZYRTEC CHILD SOL [Concomitant]

REACTIONS (3)
  - Dyspnoea [None]
  - Pyrexia [None]
  - Infection [None]
